FAERS Safety Report 5919972-9 (Version None)
Quarter: 2008Q4

REPORT INFORMATION
  Report Type: 
  Country: None (occurrence: None)
  Receive Date: 20081015
  Receipt Date: 20081008
  Transmission Date: 20090506
  Serious: Yes (Death)
  Sender: FDA-Public Use
  Company Number: CA-ALLERGAN-0812745US

PATIENT
  Sex: Male

DRUGS (2)
  1. BOTOX [Suspect]
     Indication: DROOLING
     Dosage: 90 UNITS, SINGLE
     Route: 065
  2. CLONAZEPAM [Concomitant]
     Indication: CONVULSION

REACTIONS (1)
  - RESPIRATORY DISORDER [None]
